FAERS Safety Report 9816957 (Version 1)
Quarter: 2014Q1

REPORT INFORMATION
  Report Type: Spontaneous
  Country: US (occurrence: US)
  Receive Date: 20140114
  Receipt Date: 20140114
  Transmission Date: 20141002
  Serious: Yes (Death, Hospitalization)
  Sender: FDA-Public Use
  Company Number: US-GLAXOSMITHKLINE-A1056001A

PATIENT
  Age: 60 Year
  Sex: Female

DRUGS (2)
  1. ARIXTRA [Suspect]
     Indication: PULMONARY EMBOLISM
     Route: 058
  2. UNKNOWN [Concomitant]

REACTIONS (7)
  - Pulmonary hypertension [Fatal]
  - Lung cancer metastatic [Fatal]
  - Lung neoplasm malignant [Unknown]
  - Pulmonary embolism [Unknown]
  - Intraoperative care [Unknown]
  - Asthenia [Unknown]
  - Aortic disorder [Unknown]
